FAERS Safety Report 7820665-1 (Version None)
Quarter: 2011Q4

REPORT INFORMATION
  Report Type: 
  Country: None (occurrence: None)
  Receive Date: 20111018
  Receipt Date: 20111010
  Transmission Date: 20120403
  Serious: Yes (Hospitalization)
  Sender: FDA-Public Use
  Company Number: JP-JNJFOC-20111001379

PATIENT
  Sex: Female
  Weight: 58 kg

DRUGS (29)
  1. URSO 250 [Concomitant]
     Indication: HEPATIC STEATOSIS
     Route: 048
  2. LIPIDIL [Concomitant]
     Indication: HYPERLIPIDAEMIA
     Route: 048
  3. DEXALTIN [Concomitant]
     Indication: STOMATITIS
     Dosage: Q.S
     Route: 049
     Dates: start: 20090611
  4. FAMOTIDINE [Concomitant]
     Indication: PROPHYLAXIS
     Route: 048
     Dates: start: 20090716
  5. ASTOMIN [Concomitant]
     Indication: NASOPHARYNGITIS
     Route: 048
     Dates: start: 20090716
  6. FLAVITAN [Concomitant]
     Indication: STOMATITIS
     Route: 042
     Dates: start: 20090817, end: 20090823
  7. XYLOCAINE [Concomitant]
     Indication: STOMATITIS
     Route: 049
  8. ALLOPURINOL [Concomitant]
     Indication: PRODUCT USED FOR UNKNOWN INDICATION
     Route: 048
     Dates: start: 20090530
  9. ROCEPHIN [Concomitant]
     Indication: PYREXIA
     Route: 042
     Dates: start: 20090820, end: 20090822
  10. FURSULTIAMINE [Concomitant]
     Indication: PROPHYLAXIS
     Route: 048
  11. SELBEX [Concomitant]
     Indication: PROPHYLAXIS
     Route: 048
     Dates: start: 20090530, end: 20090629
  12. COSPANON [Concomitant]
     Indication: PRODUCT USED FOR UNKNOWN INDICATION
     Route: 048
     Dates: start: 20090530
  13. LOXONIN [Concomitant]
     Indication: PROPHYLAXIS
     Route: 048
  14. RAMELTEON [Concomitant]
     Route: 042
     Dates: start: 20090625, end: 20090625
  15. FLURBIPROFEN [Concomitant]
     Route: 042
     Dates: start: 20090817, end: 20090817
  16. DOXORUBICIN HCL [Suspect]
     Dosage: CYCLE 3
     Route: 042
     Dates: start: 20090730, end: 20090730
  17. METHYCOBAL [Concomitant]
     Indication: PRODUCT USED FOR UNKNOWN INDICATION
     Route: 048
     Dates: start: 20090528
  18. JUVELA [Concomitant]
     Indication: PRODUCT USED FOR UNKNOWN INDICATION
     Route: 048
     Dates: start: 20090528
  19. MUCOSOLVAN [Concomitant]
     Indication: PRODUCT USED FOR UNKNOWN INDICATION
     Route: 048
     Dates: start: 20090730, end: 20090813
  20. AZUNOL [Concomitant]
     Indication: STOMATITIS
     Route: 049
  21. DOXORUBICIN HCL [Suspect]
     Indication: OVARIAN CANCER RECURRENT
     Dosage: CYCLE 2
     Route: 042
     Dates: start: 20090625, end: 20090625
  22. DOXORUBICIN HCL [Suspect]
     Dosage: CYCLE 1
     Route: 042
     Dates: start: 20090528, end: 20090528
  23. ALL OTHER THERAPEUTIC PRODUCTS [Concomitant]
     Indication: PROPHYLAXIS
     Route: 048
  24. MOTILIUM [Concomitant]
     Indication: PRODUCT USED FOR UNKNOWN INDICATION
     Route: 048
     Dates: start: 20090716
  25. ALL OTHER THERAPEUTIC PRODUCTS [Concomitant]
     Route: 048
  26. METOPROLOL TARTRATE [Concomitant]
     Indication: PRODUCT USED FOR UNKNOWN INDICATION
     Route: 048
     Dates: start: 20090530
  27. RAMELTEON [Concomitant]
     Indication: PROPHYLAXIS
     Route: 042
     Dates: start: 20090528, end: 20090528
  28. VITAMEDIN [Concomitant]
     Indication: STOMATITIS
     Route: 042
     Dates: start: 20090817, end: 20090823
  29. TPN ELECTROLYTES IN PLASTIC CONTAINER [Concomitant]
     Indication: EATING DISORDER
     Route: 042
     Dates: start: 20090818, end: 20090824

REACTIONS (2)
  - EATING DISORDER [None]
  - STOMATITIS [None]
